FAERS Safety Report 21156214 (Version 1)
Quarter: 2022Q3

REPORT INFORMATION
  Report Type: Spontaneous
  Country: US (occurrence: None)
  Receive Date: 20220731
  Receipt Date: 20220731
  Transmission Date: 20221027
  Serious: Yes (Disabling, Other)
  Sender: FDA-Public Use
  Company Number: None

PATIENT
  Age: 42 Year
  Sex: Male
  Weight: 155.25 kg

DRUGS (4)
  1. CITROMA [Suspect]
     Active Substance: MAGNESIUM CITRATE
     Indication: Blood magnesium decreased
     Dosage: OTHER STRENGTH : UNKNOWN;?OTHER QUANTITY : 1.5 OUNCE(S);?FREQUENCY : 3 TIMES A DAY;?
     Route: 048
  2. aprazolam [Concomitant]
  3. MAGNESIUM [Concomitant]
     Active Substance: MAGNESIUM
  4. POTASSIUM [Concomitant]
     Active Substance: POTASSIUM

REACTIONS (15)
  - Nephrolithiasis [None]
  - Muscle disorder [None]
  - Nervous system disorder [None]
  - Pyrexia [None]
  - Nausea [None]
  - Diarrhoea [None]
  - Back pain [None]
  - Renal pain [None]
  - Abdominal pain upper [None]
  - Renal neoplasm [None]
  - Flank pain [None]
  - Pyelonephritis [None]
  - Dental caries [None]
  - Bacteraemia [None]
  - Monocyte count increased [None]

NARRATIVE: CASE EVENT DATE: 20220601
